FAERS Safety Report 6849947-7 (Version None)
Quarter: 2010Q3

REPORT INFORMATION
  Report Type: 
  Country: None (occurrence: None)
  Receive Date: 20100716
  Receipt Date: 20071003
  Transmission Date: 20110219
  Serious: No
  Sender: FDA-Public Use
  Company Number: US-PFIZER INC-2007084902

PATIENT
  Age: 42 Year
  Sex: Female
  Weight: 68.2 kg

DRUGS (3)
  1. CHANTIX [Suspect]
     Indication: SMOKING CESSATION THERAPY
     Dates: start: 20070901, end: 20071003
  2. LEXAPRO [Concomitant]
  3. CLONAZEPAM [Concomitant]

REACTIONS (10)
  - ABASIA [None]
  - ABNORMAL DREAMS [None]
  - ASTHENIA [None]
  - CRYING [None]
  - DIARRHOEA [None]
  - DIZZINESS [None]
  - INFLUENZA LIKE ILLNESS [None]
  - LETHARGY [None]
  - NAUSEA [None]
  - RESTLESSNESS [None]
